FAERS Safety Report 19726379 (Version 2)
Quarter: 2021Q4

REPORT INFORMATION
  Report Type: Report from Study
  Country: IL (occurrence: IL)
  Receive Date: 20210820
  Receipt Date: 20211008
  Transmission Date: 20220303
  Serious: Yes (Other)
  Sender: FDA-Public Use
  Company Number: IL-MERCK HEALTHCARE KGAA-9258542

PATIENT
  Age: 55 Year
  Sex: Female

DRUGS (1)
  1. REBIF [Suspect]
     Active Substance: INTERFERON BETA-1A
     Indication: Product used for unknown indication
     Route: 058
     Dates: start: 20030526

REACTIONS (3)
  - Salivary hypersecretion [Recovering/Resolving]
  - Asphyxia [Unknown]
  - Presyncope [Unknown]

NARRATIVE: CASE EVENT DATE: 20200101
